FAERS Safety Report 5747757-5 (Version None)
Quarter: 2008Q2

REPORT INFORMATION
  Report Type: 
  Country: None (occurrence: None)
  Receive Date: 20080523
  Receipt Date: 20080515
  Transmission Date: 20081010
  Serious: Yes (Death)
  Sender: FDA-Public Use
  Company Number: BR-MERCK-0805BRA00025

PATIENT
  Age: 63 Year
  Sex: Male

DRUGS (1)
  1. PRIMAXIN [Suspect]
     Indication: NOSOCOMIAL INFECTION
     Route: 065

REACTIONS (1)
  - PSEUDOMONAS INFECTION [None]
